FAERS Safety Report 6361656-X (Version None)
Quarter: 2009Q3

REPORT INFORMATION
  Report Type: 
  Country: None (occurrence: None)
  Receive Date: 20090918
  Receipt Date: 20090910
  Transmission Date: 20100115
  Serious: Yes (Other)
  Sender: FDA-Public Use
  Company Number: BR-PFIZER INC-2009261598

PATIENT

DRUGS (1)
  1. DEPO-PROVERA [Suspect]
     Indication: CONTRACEPTION
     Dosage: 150 MG, EVERY 3 MONTHS, EVERY 12 WEEKS
     Route: 030
     Dates: start: 20090128, end: 20090601

REACTIONS (9)
  - ABORTION THREATENED [None]
  - DRUG EXPOSURE DURING PREGNANCY [None]
  - INAPPROPRIATE SCHEDULE OF DRUG ADMINISTRATION [None]
  - MALAISE [None]
  - METRORRHAGIA [None]
  - PREGNANCY WITH INJECTABLE CONTRACEPTIVE [None]
  - UNINTENDED PREGNANCY [None]
  - VOMITING [None]
  - WEIGHT INCREASED [None]
